FAERS Safety Report 17085483 (Version 1)
Quarter: 2019Q4

REPORT INFORMATION
  Report Type: Spontaneous
  Country: US (occurrence: US)
  Receive Date: 20191127
  Receipt Date: 20191127
  Transmission Date: 20200122
  Serious: Yes (Hospitalization)
  Sender: FDA-Public Use
  Company Number: None

PATIENT
  Age: 89 Year
  Sex: Male

DRUGS (4)
  1. SENSIPAR [Suspect]
     Active Substance: CINACALCET HYDROCHLORIDE
     Indication: PRODUCT USED FOR UNKNOWN INDICATION
     Route: 048
     Dates: start: 20180202
  2. RANITIDINE. [Concomitant]
     Active Substance: RANITIDINE
  3. NOVOLOG [Concomitant]
     Active Substance: INSULIN ASPART
  4. POT CHLORIDE CAP [Concomitant]

REACTIONS (1)
  - Pneumonia aspiration [None]
